FAERS Safety Report 7046011-1 (Version None)
Quarter: 2010Q4

REPORT INFORMATION
  Report Type: 
  Country: None (occurrence: None)
  Receive Date: 20101014
  Receipt Date: 20101006
  Transmission Date: 20110411
  Serious: Yes (Death)
  Sender: FDA-Public Use
  Company Number: US-RB-016318-10

PATIENT
  Sex: Female

DRUGS (3)
  1. SUBOXONE TABLETS [Suspect]
     Indication: DRUG DEPENDENCE
     Route: 064
     Dates: start: 20090301, end: 20090101
  2. SUBUTEX [Suspect]
     Route: 064
     Dates: start: 20090101, end: 20090101
  3. SUBUTEX [Suspect]
     Indication: DRUG DEPENDENCE
     Route: 063
     Dates: start: 20091201, end: 20100201

REACTIONS (4)
  - DRUG EXPOSURE DURING PREGNANCY [None]
  - DRUG EXPOSURE VIA BREAST MILK [None]
  - DRUG WITHDRAWAL SYNDROME NEONATAL [None]
  - SUDDEN INFANT DEATH SYNDROME [None]
